FAERS Safety Report 24708103 (Version 2)
Quarter: 2025Q1

REPORT INFORMATION
  Report Type: Report from Study
  Country: CA (occurrence: CA)
  Receive Date: 20241206
  Receipt Date: 20250306
  Transmission Date: 20250409
  Serious: Yes (Other)
  Sender: ABBVIE
  Company Number: CA-ABBVIE-6027652

PATIENT
  Age: 53 Year
  Sex: Female
  Weight: 111 kg

DRUGS (1)
  1. HUMIRA [Suspect]
     Active Substance: ADALIMUMAB
     Indication: Hidradenitis
     Route: 058
     Dates: start: 20190617, end: 202411

REACTIONS (2)
  - Hernia [Recovering/Resolving]
  - Incision site impaired healing [Unknown]
